FAERS Safety Report 23165666 (Version 4)
Quarter: 2024Q3

REPORT INFORMATION
  Report Type: Other
  Country: CA (occurrence: CA)
  Receive Date: 20231109
  Receipt Date: 20240709
  Transmission Date: 20241017
  Serious: Yes (Life-Threatening, Hospitalization, Other)
  Sender: GLENMARK
  Company Number: CA-GLENMARK PHARMACEUTICALS-2023GMK086262

PATIENT

DRUGS (65)
  1. GABAPENTIN [Suspect]
     Active Substance: GABAPENTIN
     Indication: Neuralgia
     Dosage: 1800 MILLIGRAM, 1 EVERY 1 DAYS
     Route: 048
  2. GABAPENTIN [Suspect]
     Active Substance: GABAPENTIN
     Indication: Guillain-Barre syndrome
     Dosage: 1200 MILLIGRAM, 1 EVERY 1 DAYS
     Route: 048
  3. GABAPENTIN [Suspect]
     Active Substance: GABAPENTIN
     Indication: Acute respiratory failure
     Dosage: 900 MILLIGRAM, 1 EVERY 1 DAYS
     Route: 065
  4. GABAPENTIN [Suspect]
     Active Substance: GABAPENTIN
     Dosage: 3600 MILLIGRAM, 1 EVERY 1 DAYS
     Route: 065
  5. GABAPENTIN [Suspect]
     Active Substance: GABAPENTIN
     Dosage: 300 MILLIGRAM, 1 EVERY 1 DAYS
     Route: 065
  6. GABAPENTIN [Suspect]
     Active Substance: GABAPENTIN
     Dosage: 300 MILLIGRAM, 1 EVERY 1 DAYS
     Route: 048
  7. GABAPENTIN [Suspect]
     Active Substance: GABAPENTIN
     Dosage: 3600 MILLIGRAM
     Route: 065
  8. ACETAMINOPHEN [Suspect]
     Active Substance: ACETAMINOPHEN
     Indication: Neuralgia
     Dosage: 3900 MILLIGRAM,1 EVERY 1 DAYS
     Route: 065
  9. ACETAMINOPHEN [Suspect]
     Active Substance: ACETAMINOPHEN
     Indication: Guillain-Barre syndrome
     Dosage: 2600 MILLIGRAM,1 EVERY 1 DAYS
     Route: 065
  10. ACETAMINOPHEN [Suspect]
     Active Substance: ACETAMINOPHEN
     Indication: Pain
     Dosage: 3900 MILLIGRAM
     Route: 065
  11. ACETAMINOPHEN [Suspect]
     Active Substance: ACETAMINOPHEN
     Dosage: 3900 MILLIGRAM, EVERY 1 DAYS
     Route: 065
  12. DICLOFENAC [Suspect]
     Active Substance: DICLOFENAC
     Indication: Guillain-Barre syndrome
     Dosage: UNK
     Route: 065
  13. DICLOFENAC [Suspect]
     Active Substance: DICLOFENAC
     Indication: Pain
  14. DILAUDID [Suspect]
     Active Substance: HYDROMORPHONE HYDROCHLORIDE
     Indication: Neuralgia
     Dosage: 7 MILLIGRAM, 1 EVERY 1 DAYS
     Route: 065
  15. DILAUDID [Suspect]
     Active Substance: HYDROMORPHONE HYDROCHLORIDE
     Indication: Guillain-Barre syndrome
     Dosage: 30 MILLIGRAM, 1 EVERY 1 DAYS
     Route: 065
  16. DILAUDID [Suspect]
     Active Substance: HYDROMORPHONE HYDROCHLORIDE
     Indication: Pain
     Dosage: 1 MILLIGRAM
     Route: 042
  17. DILAUDID [Suspect]
     Active Substance: HYDROMORPHONE HYDROCHLORIDE
     Dosage: 30 MILLIGRAM, EVERY 1 DAYS
     Route: 065
  18. FENTANYL [Suspect]
     Active Substance: FENTANYL\FENTANYL CITRATE
     Indication: Neuralgia
     Dosage: 37.5 MICROGRAM
     Route: 065
  19. FENTANYL [Suspect]
     Active Substance: FENTANYL\FENTANYL CITRATE
     Indication: Guillain-Barre syndrome
     Dosage: 25 MICROGRAM
     Route: 065
  20. FENTANYL [Suspect]
     Active Substance: FENTANYL\FENTANYL CITRATE
     Indication: Pain
     Dosage: 25 MICROGRAM, 1 EVERY 1 HOUR
     Route: 065
  21. FENTANYL [Suspect]
     Active Substance: FENTANYL\FENTANYL CITRATE
     Indication: Neuralgia
     Dosage: 25 MICROGRAM, 1 EVERY 1 HOURS
     Route: 065
  22. FENTANYL [Suspect]
     Active Substance: FENTANYL\FENTANYL CITRATE
     Dosage: 37.5 MICROGRAM, 1 EVERY 1 HOURS
     Route: 065
  23. FENTANYL [Suspect]
     Active Substance: FENTANYL\FENTANYL CITRATE
     Dosage: 25 MILLIGRAM, 1 EVERY 1 HOURS
     Route: 065
  24. FENTANYL [Suspect]
     Active Substance: FENTANYL\FENTANYL CITRATE
     Dosage: 37.5 MILLIGRAM, 1 EVERY 1 HOURS
     Route: 065
  25. FENTANYL [Suspect]
     Active Substance: FENTANYL\FENTANYL CITRATE
     Dosage: UNK
     Route: 065
  26. FENTANYL [Suspect]
     Active Substance: FENTANYL\FENTANYL CITRATE
     Dosage: UNK
     Route: 065
  27. HYDROMORPHONE [Suspect]
     Active Substance: HYDROMORPHONE
     Indication: Neuralgia
     Dosage: 1 MILLIGRAM
     Route: 042
  28. HYDROMORPHONE [Suspect]
     Active Substance: HYDROMORPHONE
     Indication: Guillain-Barre syndrome
  29. IBUPROFEN [Suspect]
     Active Substance: IBUPROFEN
     Indication: Neuralgia
     Dosage: 1600 MILLIGRAM, 1 EVERY 1 DAYS
     Route: 065
  30. IBUPROFEN [Suspect]
     Active Substance: IBUPROFEN
     Indication: Guillain-Barre syndrome
     Dosage: 1600 MILLIGRAM, EVERY 1 DAYS
     Route: 065
  31. IBUPROFEN [Suspect]
     Active Substance: IBUPROFEN
     Indication: Acute respiratory failure
  32. HUMAN IMMUNOGLOBULIN G [Suspect]
     Active Substance: HUMAN IMMUNOGLOBULIN G
     Indication: Guillain-Barre syndrome
     Dosage: 400 MILLIGRAM/KILOGRAM
     Route: 065
  33. HUMAN IMMUNOGLOBULIN G [Suspect]
     Active Substance: HUMAN IMMUNOGLOBULIN G
     Dosage: 400 MILLIGRAM/KILOGRAM, 1 EVERY 1 DAYS
     Route: 065
  34. KETAMINE [Suspect]
     Active Substance: KETAMINE
     Indication: Neuralgia
     Dosage: 40 MILLIGRAM, 1 EVERY 1 DAYS
     Route: 065
  35. KETAMINE [Suspect]
     Active Substance: KETAMINE
     Indication: Guillain-Barre syndrome
     Dosage: 30 MILLIGRAM, 1 EVERY 1 DAYS
     Route: 065
  36. KETAMINE [Suspect]
     Active Substance: KETAMINE
     Dosage: 40 MILLIGRAM, EVERY 1 DAYS
     Route: 065
  37. LIDOCAINE [Suspect]
     Active Substance: LIDOCAINE
     Indication: Neuralgia
     Dosage: 3.84 MILLIGRAM,1 EVERY 1 HOURS
     Route: 042
  38. LIDOCAINE [Suspect]
     Active Substance: LIDOCAINE
     Indication: Guillain-Barre syndrome
  39. LIDOCAINE [Suspect]
     Active Substance: LIDOCAINE
     Indication: Pain
  40. VENLAFAXINE [Suspect]
     Active Substance: VENLAFAXINE HYDROCHLORIDE
     Indication: Neuralgia
     Dosage: 75 MILLIGRAM
     Route: 065
  41. NABILONE [Suspect]
     Active Substance: NABILONE
     Indication: Neuralgia
     Dosage: 6 MILLIGRAM,1 EVERY 1 DAYS
     Route: 065
  42. NABILONE [Suspect]
     Active Substance: NABILONE
     Indication: Guillain-Barre syndrome
     Dosage: 2 MILLIGRAM,1 EVERY 1 DAYS
     Route: 065
  43. NABILONE [Suspect]
     Active Substance: NABILONE
     Indication: Pain
     Dosage: 6 MILLIGRAM
     Route: 065
  44. NABILONE [Suspect]
     Active Substance: NABILONE
     Dosage: 6 MILLIGRAM, EVERY 1 DAYS
     Route: 065
  45. OLANZAPINE [Suspect]
     Active Substance: OLANZAPINE
     Indication: Neuralgia
     Dosage: 2.5 MILLIGRAM, 1 EVERY 1 DAYS
     Route: 065
  46. OLANZAPINE [Suspect]
     Active Substance: OLANZAPINE
     Indication: Guillain-Barre syndrome
     Dosage: 3 MILLIGRAM, 1 EVERY 1 DAYS
     Route: 065
  47. OLANZAPINE [Suspect]
     Active Substance: OLANZAPINE
     Indication: Pain
     Dosage: 2.5 MILLIGRAM
     Route: 065
  48. OLANZAPINE [Suspect]
     Active Substance: OLANZAPINE
     Dosage: 2.5 MILLIGRAM, EVERY 1 DAYS
     Route: 065
  49. PHENYTOIN [Suspect]
     Active Substance: PHENYTOIN
     Indication: Neuralgia
     Dosage: 1500 MILLIGRAM,1 EVERY 1 DAYS
     Route: 065
  50. ZOPICLONE [Suspect]
     Active Substance: ZOPICLONE
     Indication: Neuralgia
     Dosage: 7.5 MILLIGRAM
     Route: 065
  51. ZOPICLONE [Suspect]
     Active Substance: ZOPICLONE
     Indication: Guillain-Barre syndrome
  52. HYDROMORPHONE HYDROCHLORIDE [Suspect]
     Active Substance: HYDROMORPHONE HYDROCHLORIDE
     Indication: Neuralgia
     Dosage: 1 MILLIGRAM, PRN (AS REQUIRED)
     Route: 042
  53. IMMUNE GLOBULIN NOS [Suspect]
     Active Substance: IMMUNE GLOBULIN NOS
     Indication: Guillain-Barre syndrome
     Dosage: 400 MILLIGRAM/KILOGRAM
     Route: 042
  54. LIDOCAINE HYDROCHLORIDE [Suspect]
     Active Substance: LIDOCAINE HYDROCHLORIDE
     Indication: Neuralgia
     Dosage: 3.84 MILLIGRAM
     Route: 065
  55. VENLAFAXINE HYDROCHLORIDE [Suspect]
     Active Substance: VENLAFAXINE HYDROCHLORIDE
     Indication: Neuralgia
     Dosage: 75 MILLIGRAM
     Route: 065
  56. VENLAFAXINE [Suspect]
     Active Substance: VENLAFAXINE HYDROCHLORIDE
     Indication: Neuralgia
     Dosage: 75 MILLIGRAM
     Route: 065
  57. VENLAFAXINE [Suspect]
     Active Substance: VENLAFAXINE HYDROCHLORIDE
     Indication: Guillain-Barre syndrome
     Dosage: 75 MILLIGRAM,1 EVERY 1 DAYS
     Route: 065
  58. DICLOFENAC SODIUM [Suspect]
     Active Substance: DICLOFENAC\DICLOFENAC SODIUM
     Indication: Neuralgia
     Dosage: UNK
     Route: 065
  59. KETAMINE HYDROCHLORIDE [Suspect]
     Active Substance: KETAMINE HYDROCHLORIDE
     Indication: Neuralgia
     Dosage: 40 MILLIGRAM, 1 EVERY 1 DAYS
     Route: 065
  60. KETAMINE HYDROCHLORIDE [Suspect]
     Active Substance: KETAMINE HYDROCHLORIDE
     Dosage: 30 MILLIGRAM, 1 EVERY 1 DAYS
     Route: 065
  61. LIDOCAINE [Suspect]
     Active Substance: LIDOCAINE
     Indication: Neuralgia
     Dosage: 3.84 MILLIGRAM, 1 EVERY 1 HOURS
     Route: 042
  62. LIDOCAINE [Suspect]
     Active Substance: LIDOCAINE
     Dosage: UNK
     Route: 065
  63. NORTRIPTYLINE [Concomitant]
     Active Substance: NORTRIPTYLINE
     Indication: Neuralgia
     Dosage: 35 MILLIGRAM, 1 EVERY 1 DAY
     Route: 065
  64. MORPHINE [Concomitant]
     Active Substance: MORPHINE
     Indication: Neuralgia
     Dosage: UNK
     Route: 065
  65. BUPIVACAINE [Concomitant]
     Active Substance: BUPIVACAINE
     Indication: Neuralgia
     Dosage: UNK
     Route: 065

REACTIONS (5)
  - Inspiratory capacity decreased [Unknown]
  - Off label use [Unknown]
  - Drug ineffective [Unknown]
  - Therapy non-responder [Unknown]
  - Drug ineffective for unapproved indication [Unknown]
